FAERS Safety Report 4933801-1 (Version None)
Quarter: 2006Q1

REPORT INFORMATION
  Report Type: 
  Country: None (occurrence: None)
  Receive Date: 20060306
  Receipt Date: 20050325
  Transmission Date: 20060701
  Serious: Yes (Hospitalization, Disabling)
  Sender: FDA-Public Use
  Company Number: US-MERCK-0503USA04977

PATIENT
  Age: 56 Year
  Sex: Female
  Weight: 52 kg

DRUGS (17)
  1. VIOXX [Suspect]
     Indication: PAIN IN EXTREMITY
     Route: 048
     Dates: start: 20000401, end: 20030101
  2. HUMULIN N [Concomitant]
     Route: 065
  3. HUMULIN R [Concomitant]
     Route: 065
  4. ASPIRIN [Concomitant]
     Route: 065
  5. PREMARIN [Concomitant]
     Route: 065
  6. MEDROXYPROGESTERONE ACETATE [Concomitant]
     Route: 065
  7. PIROXICAM [Concomitant]
     Route: 065
  8. INDOMETHACIN [Concomitant]
     Route: 065
  9. PYRIDIATE [Concomitant]
     Route: 065
  10. PHENERGAN EXPECTORANT W/ CODEINE [Concomitant]
     Route: 065
  11. IBUPROFEN [Concomitant]
     Route: 065
  12. AMOXICILLIN [Concomitant]
     Route: 065
  13. MECLIZINE [Concomitant]
     Route: 065
  14. DIFLUCAN [Concomitant]
     Route: 065
  15. VICODIN [Concomitant]
     Route: 065
  16. GLYBURIDE [Concomitant]
     Route: 065
  17. IMITREX [Concomitant]
     Route: 065

REACTIONS (14)
  - ASTHENIA [None]
  - BLOOD GLUCOSE INCREASED [None]
  - CARPAL TUNNEL SYNDROME [None]
  - CEREBROVASCULAR ACCIDENT [None]
  - DEPRESSION [None]
  - DYSPHAGIA [None]
  - FUNGAL INFECTION [None]
  - HYPERTENSION [None]
  - INSOMNIA [None]
  - PERIODIC LIMB MOVEMENT DISORDER [None]
  - SLEEP APNOEA SYNDROME [None]
  - SNORING [None]
  - TRIGGER FINGER [None]
  - URETERITIS [None]
